FAERS Safety Report 23737032 (Version 2)
Quarter: 2024Q2

REPORT INFORMATION
  Report Type: Other
  Country: US (occurrence: None)
  Receive Date: 20240412
  Receipt Date: 20240416
  Transmission Date: 20240716
  Serious: Yes (Hospitalization, Other)
  Sender: FDA-Public Use
  Company Number: US-ROCHE-3540518

PATIENT
  Age: 50 Year
  Sex: Female

DRUGS (32)
  1. XOLAIR [Suspect]
     Active Substance: OMALIZUMAB
     Indication: Idiopathic urticaria
     Dosage: LAST INJECTION DATE:11/MAR/2024
     Route: 058
  2. XOLAIR [Suspect]
     Active Substance: OMALIZUMAB
     Indication: Immunodeficiency common variable
  3. XOLAIR [Suspect]
     Active Substance: OMALIZUMAB
     Indication: Mast cell activation syndrome
  4. PANTOPRAZOLE SODIUM [Concomitant]
     Active Substance: PANTOPRAZOLE SODIUM
     Route: 048
  5. FLOVENT HFA [Concomitant]
     Active Substance: FLUTICASONE PROPIONATE
     Dosage: 110MCG 1, 2PUFFS
  6. EPIPEN [Concomitant]
     Active Substance: EPINEPHRINE
     Route: 030
  7. VIGAMOX [Concomitant]
     Active Substance: MOXIFLOXACIN HYDROCHLORIDE
  8. CETIRIZINE HCL [Concomitant]
     Active Substance: CETIRIZINE HYDROCHLORIDE
     Route: 048
  9. GENTAMICIN [Concomitant]
     Active Substance: GENTAMICIN
  10. ACCOLATE [Concomitant]
     Active Substance: ZAFIRLUKAST
     Route: 048
  11. HIZENTRA [Concomitant]
     Active Substance: HUMAN IMMUNOGLOBULIN G
     Route: 058
  12. CROMOLYN [Concomitant]
     Active Substance: CROMOLYN
     Route: 048
  13. KETOTIFEN [Concomitant]
     Active Substance: KETOTIFEN
  14. NYSTATIN [Concomitant]
     Active Substance: NYSTATIN
  15. ALBUTEROL [Concomitant]
     Active Substance: ALBUTEROL
  16. BUDESONIDE [Concomitant]
     Active Substance: BUDESONIDE
  17. OLOPATADINE HYDROCHLORIDE [Concomitant]
     Active Substance: OLOPATADINE HYDROCHLORIDE
  18. DIFLUCAN [Concomitant]
     Active Substance: FLUCONAZOLE
  19. PREDNISONE [Concomitant]
     Active Substance: PREDNISONE
     Route: 048
  20. VALTREX [Concomitant]
     Active Substance: VALACYCLOVIR HYDROCHLORIDE
  21. AZITHROMYCIN [Concomitant]
     Active Substance: AZITHROMYCIN
  22. METOPROLOL TARTRATE [Concomitant]
     Active Substance: METOPROLOL TARTRATE
  23. CIPROFLOXACIN HYDROCHLORIDE [Concomitant]
     Active Substance: CIPROFLOXACIN HYDROCHLORIDE
  24. TAMIFLU [Concomitant]
     Active Substance: OSELTAMIVIR PHOSPHATE
     Route: 048
  25. ETHINYL ESTRADIOL\ETHYNODIOL DIACETATE [Concomitant]
     Active Substance: ETHINYL ESTRADIOL\ETHYNODIOL DIACETATE
  26. BENADRYL [Concomitant]
     Active Substance: DIPHENHYDRAMINE HYDROCHLORIDE
  27. ATIVAN [Concomitant]
     Active Substance: LORAZEPAM
  28. LASIX [Concomitant]
     Active Substance: FUROSEMIDE
     Route: 048
  29. CANNABIS SATIVA SEED OIL\HERBALS [Concomitant]
     Active Substance: CANNABIS SATIVA SEED OIL\HERBALS
  30. AMLODIPINE BESYLATE [Concomitant]
     Active Substance: AMLODIPINE BESYLATE
  31. UBRELVY [Concomitant]
     Active Substance: UBROGEPANT
  32. CIPRO [Concomitant]
     Active Substance: CIPROFLOXACIN HYDROCHLORIDE

REACTIONS (57)
  - Blister [Unknown]
  - Anaphylactic shock [Unknown]
  - Palpitations [Unknown]
  - Pancreatitis acute [Unknown]
  - Cyst [Unknown]
  - Pancreatic cyst [Unknown]
  - Product dose omission in error [Unknown]
  - Cataract [Unknown]
  - Hypokalaemia [Unknown]
  - Hepatic pain [Unknown]
  - Acinar cell carcinoma of pancreas [Unknown]
  - Haemoglobin decreased [Unknown]
  - Ocular icterus [Unknown]
  - Vomiting [Unknown]
  - Jaundice [Unknown]
  - Hepatic steatosis [Unknown]
  - Skin hyperpigmentation [Unknown]
  - Petechiae [Unknown]
  - Skin fragility [Unknown]
  - Nausea [Unknown]
  - Dehydration [Unknown]
  - Gait disturbance [Unknown]
  - Lacrimation increased [Unknown]
  - Brain fog [Unknown]
  - COVID-19 [Unknown]
  - Joint swelling [Unknown]
  - Hypoaesthesia [Unknown]
  - Chest pain [Unknown]
  - Gastrointestinal disorder [Unknown]
  - Diarrhoea [Unknown]
  - Lymphoma [Unknown]
  - Blood glucose increased [Unknown]
  - Transaminases increased [Unknown]
  - Systemic lupus erythematosus [Unknown]
  - Sinusitis [Unknown]
  - Asthma [Unknown]
  - Tremor [Unknown]
  - Hypertension [Unknown]
  - Bladder discomfort [Unknown]
  - Conjunctivitis [Unknown]
  - Feeling of body temperature change [Unknown]
  - Blood urine present [Unknown]
  - Granulocytosis [Unknown]
  - White blood cell count increased [Unknown]
  - Fatigue [Unknown]
  - Hyperhidrosis [Unknown]
  - Swelling of eyelid [Unknown]
  - Facial discomfort [Unknown]
  - Weight increased [Unknown]
  - Mastocytosis [Unknown]
  - Urinary tract infection [Unknown]
  - Lymphadenopathy [Unknown]
  - Haematocrit decreased [Unknown]
  - Neutrophil count increased [Unknown]
  - Lymphocyte count increased [Unknown]
  - Monocyte count increased [Unknown]
  - Urticaria [Unknown]
